FAERS Safety Report 8014271-6 (Version None)
Quarter: 2011Q4

REPORT INFORMATION
  Report Type: 
  Country: None (occurrence: None)
  Receive Date: 20111229
  Receipt Date: 20111212
  Transmission Date: 20120403
  Serious: Yes (Other)
  Sender: FDA-Public Use
  Company Number: RS-GLAXOSMITHKLINE-B0770092A

PATIENT
  Sex: Female
  Weight: 57 kg

DRUGS (4)
  1. AMINOFILIN [Concomitant]
  2. SPIRIVA [Concomitant]
  3. FLUTICASONE PROPIONATE/SALMETEROL [Suspect]
     Indication: BRONCHITIS CHRONIC
     Route: 055
  4. BERODUAL [Concomitant]

REACTIONS (3)
  - DIZZINESS [None]
  - LOSS OF CONSCIOUSNESS [None]
  - FEELING ABNORMAL [None]
